FAERS Safety Report 23357305 (Version 3)
Quarter: 2024Q1

REPORT INFORMATION
  Report Type: Report from Study
  Country: US (occurrence: US)
  Receive Date: 20240102
  Receipt Date: 20240129
  Transmission Date: 20240410
  Serious: Yes (Other)
  Sender: FDA-Public Use
  Company Number: US-ACADIA PHARMACEUTICALS INC.-ACA-2023-PIM-005974

PATIENT
  Age: 81 Year
  Sex: Female

DRUGS (29)
  1. NUPLAZID [Suspect]
     Active Substance: PIMAVANSERIN TARTRATE
     Indication: Parkinson^s disease psychosis
     Dosage: 34 MILLIGRAM, QD
     Route: 048
     Dates: start: 20230630
  2. QUETIAPINE [Suspect]
     Active Substance: QUETIAPINE
     Dosage: 37.5 MG NIGHTLY
     Route: 065
  3. QUETIAPINE [Suspect]
     Active Substance: QUETIAPINE
     Dosage: 12.5 MG NIGHTLY
     Route: 065
  4. ALLOPURINOL [Concomitant]
     Active Substance: ALLOPURINOL
  5. ALPHA LIPOIC ACID [Concomitant]
     Active Substance: .ALPHA.-LIPOIC ACID
  6. AMITRIPTYLINE [Concomitant]
     Active Substance: AMITRIPTYLINE
  7. APIXABAN [Concomitant]
     Active Substance: APIXABAN
  8. CLONAZEPAM [Concomitant]
     Active Substance: CLONAZEPAM
  9. DIGOXIN [Concomitant]
     Active Substance: DIGOXIN
  10. DONEPEZIL [Concomitant]
     Active Substance: DONEPEZIL
  11. DROXIDOPA [Concomitant]
     Active Substance: DROXIDOPA
  12. ESTRADIOL [Concomitant]
     Active Substance: ESTRADIOL
     Route: 061
  13. FAMOTIDINE [Concomitant]
     Active Substance: FAMOTIDINE
  14. FLECAINIDE [Concomitant]
     Active Substance: FLECAINIDE
  15. LEVOTHYROXINE [Concomitant]
     Active Substance: LEVOTHYROXINE\LEVOTHYROXINE SODIUM
  16. CRANBERRY JUICE [Concomitant]
     Active Substance: CRANBERRY JUICE
  17. FLUDROCORTISONE [Concomitant]
     Active Substance: FLUDROCORTISONE
  18. MEGESTROL [Concomitant]
     Active Substance: MEGESTROL
  19. MEMANTINE [Concomitant]
     Active Substance: MEMANTINE
  20. MIDODRINE [Concomitant]
     Active Substance: MIDODRINE
  21. OCTREOTIDE [Concomitant]
     Active Substance: OCTREOTIDE\OCTREOTIDE ACETATE
     Route: 058
  22. PANTOPRAZOLE [Concomitant]
     Active Substance: PANTOPRAZOLE
  23. PYRIDOSTIGMINE [Concomitant]
     Active Substance: PYRIDOSTIGMINE
  24. ROSUVASTATIN [Concomitant]
     Active Substance: ROSUVASTATIN
  25. RYBELSUS [Concomitant]
     Active Substance: SEMAGLUTIDE
  26. VITAMIN C [Concomitant]
     Active Substance: ASCORBIC ACID
  27. VITAMIN D NOS [Concomitant]
     Active Substance: VITAMIN D NOS
  28. VITAMIN E [Concomitant]
     Active Substance: .ALPHA.-TOCOPHEROL
  29. ZINC [Concomitant]
     Active Substance: PYRITHIONE ZINC\ZINC\ZINC CHLORIDE

REACTIONS (2)
  - Electrocardiogram QT prolonged [Recovered/Resolved]
  - Drug interaction [Not Recovered/Not Resolved]

NARRATIVE: CASE EVENT DATE: 20231213
